FAERS Safety Report 4816049-0 (Version None)
Quarter: 2005Q4

REPORT INFORMATION
  Report Type: 
  Country: None (occurrence: None)
  Receive Date: 20051026
  Receipt Date: 20051011
  Transmission Date: 20060501
  Serious: Yes (Hospitalization, Other)
  Sender: FDA-Public Use
  Company Number: USA050392952

PATIENT
  Age: 60 Year
  Sex: Female
  Weight: 66 kg

DRUGS (1)
  1. FORTEO [Suspect]
     Indication: OSTEOPOROSIS
     Dosage: 20 UG DAY
     Dates: start: 20040816

REACTIONS (10)
  - BACK DISORDER [None]
  - BONE SCAN ABNORMAL [None]
  - DEVICE MIGRATION [None]
  - DRUG INEFFECTIVE [None]
  - HOT FLUSH [None]
  - MIDDLE INSOMNIA [None]
  - MUSCLE SPASMS [None]
  - NIGHT SWEATS [None]
  - PHARMACEUTICAL PRODUCT COMPLAINT [None]
  - SLEEP DISORDER [None]
